FAERS Safety Report 8145455-4 (Version None)
Quarter: 2012Q1

REPORT INFORMATION
  Report Type: 
  Country: None (occurrence: None)
  Receive Date: 20120214
  Receipt Date: 20120202
  Transmission Date: 20120608
  Serious: Yes (Other)
  Sender: FDA-Public Use
  Company Number: NSR_00493_2012

PATIENT
  Sex: Male
  Weight: 199.5827 kg

DRUGS (5)
  1. INDERAL LA [Concomitant]
  2. PROPRANOLOL HYDROCHLORIDE [Suspect]
     Indication: MIGRAINE
     Dosage: (80 MG BID ORAL)
     Route: 048
     Dates: start: 20100101, end: 20120101
  3. ALLOPURINOL [Concomitant]
  4. METFORMIN HCL [Concomitant]
  5. XANAX [Concomitant]

REACTIONS (10)
  - PENIS INJURY [None]
  - PENILE CURVATURE [None]
  - PAINFUL ERECTION [None]
  - RASH [None]
  - WEIGHT INCREASED [None]
  - HEART RATE DECREASED [None]
  - PEYRONIE'S DISEASE [None]
  - PYREXIA [None]
  - CHILLS [None]
  - PENILE HAEMORRHAGE [None]
